FAERS Safety Report 10252351 (Version 2)
Quarter: 2014Q2

REPORT INFORMATION
  Report Type: Report from Study
  Country: FR (occurrence: FR)
  Receive Date: 20140623
  Receipt Date: 20140623
  Transmission Date: 20141212
  Serious: Yes (Hospitalization, Disabling)
  Sender: FDA-Public Use
  Company Number: FR-DSJP-DSM-2013-00687

PATIENT
  Age: 45 Year
  Sex: Female

DRUGS (3)
  1. ALTEISDUO 20 MG / 12,5 MG [Suspect]
     Indication: HYPERTENSION
     Dosage: 20/12.5 MG     EVERY
     Route: 048
     Dates: start: 2006, end: 20110617
  2. MIRENA [Concomitant]
     Indication: PRODUCT USED FOR UNKNOWN INDICATION
     Dosage: EVERY
     Route: 015
  3. MELODIA [Concomitant]
     Indication: PRODUCT USED FOR UNKNOWN INDICATION
     Dosage: EVERY
     Route: 048

REACTIONS (4)
  - Intestinal villi atrophy [Recovered/Resolved]
  - Weight decreased [Recovered/Resolved]
  - Jaundice [Recovered/Resolved]
  - Hepatocellular injury [Recovered/Resolved]
